FAERS Safety Report 20445342 (Version 1)
Quarter: 2022Q1

REPORT INFORMATION
  Report Type: Spontaneous
  Country: US (occurrence: None)
  Receive Date: 20220208
  Receipt Date: 20220208
  Transmission Date: 20220423
  Serious: No
  Sender: FDA-Public Use
  Company Number: None

PATIENT
  Age: 86 Year
  Sex: Male
  Weight: 143.3 kg

DRUGS (22)
  1. INLYTA [Suspect]
     Active Substance: AXITINIB
     Indication: Metastases to lung
     Dosage: FREQUENCY : EVERY 12 HOURS;?
     Route: 048
  2. VITAMIN B12 [Concomitant]
     Active Substance: CYANOCOBALAMIN
  3. KETOCONAZOLE [Concomitant]
     Active Substance: KETOCONAZOLE
  4. LATANOPROST [Concomitant]
     Active Substance: LATANOPROST
  5. VITAMIN D3 [Concomitant]
     Active Substance: CHOLECALCIFEROL
  6. XALATAN [Concomitant]
     Active Substance: LATANOPROST
  7. BISACODYL [Concomitant]
     Active Substance: BISACODYL
  8. ASPIRIN [Concomitant]
     Active Substance: ASPIRIN
  9. TAMSULOSIN [Concomitant]
     Active Substance: TAMSULOSIN
  10. LISINPRIL-HCTZ [Concomitant]
  11. DORZOLAMIDE [Concomitant]
     Active Substance: DORZOLAMIDE
  12. ASCORBIC ACID [Concomitant]
  13. MECLIZINE [Concomitant]
     Active Substance: MECLIZINE HYDROCHLORIDE
  14. CYCLOPIROX [Concomitant]
  15. GRIS-PEG [Concomitant]
     Active Substance: GRISEOFULVIN
  16. ATORVASTATIN [Concomitant]
     Active Substance: ATORVASTATIN
  17. ACETIMANOPHEN [Concomitant]
  18. FOLIC ACID [Concomitant]
     Active Substance: FOLIC ACID
  19. LISINOPRIL [Concomitant]
     Active Substance: LISINOPRIL
  20. HYDROCHLOROTHIAZIDE [Concomitant]
     Active Substance: HYDROCHLOROTHIAZIDE
  21. COSOPT [Concomitant]
     Active Substance: DORZOLAMIDE HYDROCHLORIDE\TIMOLOL MALEATE
  22. COMBIGAN [Concomitant]
     Active Substance: BRIMONIDINE TARTRATE\TIMOLOL MALEATE

REACTIONS (1)
  - Toxicity to various agents [None]
